FAERS Safety Report 13196879 (Version 1)
Quarter: 2017Q1

REPORT INFORMATION
  Report Type: Spontaneous
  Country: US (occurrence: US)
  Receive Date: 20170208
  Receipt Date: 20170208
  Transmission Date: 20170428
  Serious: No
  Sender: FDA-Public Use
  Company Number: US-AMGEN-USASP2016168323

PATIENT
  Age: 76 Year
  Sex: Male

DRUGS (3)
  1. ALIMTA [Concomitant]
     Active Substance: PEMETREXED DISODIUM
  2. CARBOPLATIN. [Concomitant]
     Active Substance: CARBOPLATIN
  3. NEULASTA [Suspect]
     Active Substance: PEGFILGRASTIM
     Indication: NEUTROPENIA
     Dosage: UNK
     Route: 065

REACTIONS (5)
  - Arthralgia [Unknown]
  - Hypoaesthesia [Unknown]
  - Joint swelling [Not Recovered/Not Resolved]
  - Bone disorder [Not Recovered/Not Resolved]
  - Pain [Unknown]

NARRATIVE: CASE EVENT DATE: 201611
